FAERS Safety Report 5886632-2 (Version None)
Quarter: 2008Q3

REPORT INFORMATION
  Report Type: 
  Country: None (occurrence: None)
  Receive Date: 20080917
  Receipt Date: 20080908
  Transmission Date: 20090109
  Serious: Yes (Other)
  Sender: FDA-Public Use
  Company Number: PHBS2008FR05673

PATIENT
  Age: 109 Year
  Sex: Female

DRUGS (3)
  1. OXCARBAZEPINE [Suspect]
     Indication: TRIGEMINAL NEURALGIA
     Dosage: 450 MG/DAY
     Route: 065
  2. OXCARBAZEPINE [Suspect]
     Dosage: 100 MG/DAY
  3. PREGABALIN [Suspect]
     Indication: TRIGEMINAL NEURALGIA
     Dosage: 300 MG/DAY
     Route: 065

REACTIONS (6)
  - ASTHENIA [None]
  - DELIRIUM [None]
  - DRUG INEFFECTIVE [None]
  - DYSPHORIA [None]
  - HYPOPHAGIA [None]
  - STEREOTACTIC SURGERY [None]
